FAERS Safety Report 5253014-6 (Version None)
Quarter: 2007Q1

REPORT INFORMATION
  Report Type: 
  Country: None (occurrence: None)
  Receive Date: 20070301
  Receipt Date: 20070220
  Transmission Date: 20070707
  Serious: Yes (Hospitalization)
  Sender: FDA-Public Use
  Company Number: CA-ROCHE-483928

PATIENT
  Age: 15 Year
  Sex: Male

DRUGS (4)
  1. ACCUTANE [Suspect]
     Indication: ACNE
     Route: 048
     Dates: start: 20060615
  2. ROCEPHIN [Suspect]
     Indication: PNEUMONIA
     Dosage: FORM REPORTED AS VIAL.
     Route: 065
     Dates: start: 20070219
  3. CEFUROXIME [Concomitant]
     Indication: PNEUMONIA
     Dosage: ONE DOSE.
     Dates: start: 20070219
  4. AZITHROMYCIN [Concomitant]
     Indication: PNEUMONIA
     Dates: start: 20070219

REACTIONS (3)
  - INTERNATIONAL NORMALISED RATIO INCREASED [None]
  - PNEUMONIA [None]
  - PROTHROMBIN TIME PROLONGED [None]
